FAERS Safety Report 9670624 (Version 1)
Quarter: 2013Q4

REPORT INFORMATION
  Report Type: Spontaneous
  Country: US (occurrence: US)
  Receive Date: 20131106
  Receipt Date: 20131106
  Transmission Date: 20140711
  Serious: No
  Sender: FDA-Public Use
  Company Number: US-BIOGENIDEC-2013BI105404

PATIENT
  Sex: Female

DRUGS (4)
  1. TYSABRI [Suspect]
     Indication: MULTIPLE SCLEROSIS
     Route: 042
     Dates: start: 20121128, end: 20130123
  2. TECFIDERA [Concomitant]
     Indication: MULTIPLE SCLEROSIS
  3. BETASERONE [Concomitant]
  4. COPAXONE [Concomitant]

REACTIONS (3)
  - Fall [Recovered/Resolved]
  - Groin pain [Unknown]
  - Libido decreased [Unknown]
